FAERS Safety Report 4726141-7 (Version None)
Quarter: 2005Q3

REPORT INFORMATION
  Report Type: 
  Country: None (occurrence: None)
  Receive Date: 20050725
  Receipt Date: 20050725
  Transmission Date: 20060218
  Serious: Yes (Death)
  Sender: FDA-Public Use
  Company Number: None

PATIENT
  Age: 81 Year
  Sex: Male
  Weight: 66 kg

DRUGS (5)
  1. BEVACIZUMAB (25MG/ML) [Suspect]
     Indication: COLON CANCER METASTATIC
     Dosage: 503MG ONCE Q 3 WKS IV
     Route: 042
     Dates: start: 20050627
  2. IRINOTECAN (20MG/ML) [Suspect]
     Indication: COLON CANCER METASTATIC
     Dosage: 423MG ONCE Q 3 WKS IV
     Route: 042
     Dates: start: 20050627
  3. CAPECITABINE [Concomitant]
  4. ARANESP [Concomitant]
  5. COLACE [Concomitant]

REACTIONS (7)
  - ATELECTASIS [None]
  - COLON CANCER METASTATIC [None]
  - ILEUS [None]
  - INTESTINAL PERFORATION [None]
  - LUNG INFILTRATION [None]
  - MALIGNANT NEOPLASM PROGRESSION [None]
  - REFUSAL OF TREATMENT BY PATIENT [None]
